FAERS Safety Report 23515974 (Version 1)
Quarter: 2024Q1

REPORT INFORMATION
  Report Type: Spontaneous
  Country: US (occurrence: US)
  Receive Date: 20240213
  Receipt Date: 20240213
  Transmission Date: 20240409
  Serious: No
  Sender: FDA-Public Use
  Company Number: US-ACORDA-ACO_176776_2023

PATIENT
  Age: 68 Year
  Sex: Female

DRUGS (1)
  1. INBRIJA [Suspect]
     Active Substance: LEVODOPA
     Indication: On and off phenomenon
     Dosage: 84 MILLIGRAM, PRN
     Dates: start: 20231026

REACTIONS (7)
  - Incorrect dose administered by device [Unknown]
  - Device issue [Unknown]
  - Suspected counterfeit product [Unknown]
  - Product communication issue [Unknown]
  - Patient dissatisfaction with treatment [Unknown]
  - Product formulation issue [Unknown]
  - Drug ineffective [Unknown]

NARRATIVE: CASE EVENT DATE: 20221026
